FAERS Safety Report 15656067 (Version 1)
Quarter: 2018Q4

REPORT INFORMATION
  Report Type: Spontaneous
  Country: US (occurrence: US)
  Receive Date: 20181115
  Receipt Date: 20181115
  Transmission Date: 20190205
  Serious: Yes (Death)
  Sender: FDA-Public Use
  Company Number: None

PATIENT
  Age: 70 Year
  Sex: Female
  Weight: 53.4 kg

DRUGS (2)
  1. BEVACIZUMAB. [Suspect]
     Active Substance: BEVACIZUMAB
     Indication: OVARIAN CANCER
     Route: 042
     Dates: end: 20171221
  2. ZEJULA [Concomitant]
     Active Substance: NIRAPARIB
     Dates: start: 20180208

REACTIONS (3)
  - Gastrointestinal perforation [None]
  - Constipation [None]
  - Colon cancer [None]

NARRATIVE: CASE EVENT DATE: 20180219
